FAERS Safety Report 4788497-9 (Version None)
Quarter: 2005Q4

REPORT INFORMATION
  Report Type: 
  Country: None (occurrence: None)
  Receive Date: 20051005
  Receipt Date: 20051005
  Transmission Date: 20060501
  Serious: Yes (Hospitalization)
  Sender: FDA-Public Use
  Company Number: None

PATIENT
  Sex: Male
  Weight: 65 kg

DRUGS (1)
  1. ASPIRIN [Suspect]

REACTIONS (5)
  - ARTERIAL HAEMORRHAGE [None]
  - HAEMATEMESIS [None]
  - MALLORY-WEISS SYNDROME [None]
  - SHOCK [None]
  - SYNCOPE [None]
